FAERS Safety Report 6942665-6 (Version None)
Quarter: 2010Q3

REPORT INFORMATION
  Report Type: 
  Country: None (occurrence: None)
  Receive Date: 20100826
  Receipt Date: 20100813
  Transmission Date: 20110219
  Serious: Yes (Hospitalization, Other)
  Sender: FDA-Public Use
  Company Number: PHHY2009CA24126

PATIENT
  Sex: Male

DRUGS (6)
  1. SANDOSTATIN LAR [Suspect]
     Indication: CARCINOID TUMOUR
     Dosage: 30 MG, QMO
     Route: 030
     Dates: start: 20050505
  2. SANDOSTATIN LAR [Suspect]
     Dosage: 40 MG EVERY 4 WEEKS
     Route: 030
  3. SANDOSTATIN LAR [Suspect]
     Dosage: 50 MG EVERY 4 WEEKS
     Route: 030
  4. METOPROLOL [Suspect]
  5. VITALUX [Concomitant]
  6. DIGOXIN [Concomitant]

REACTIONS (12)
  - ARTHRALGIA [None]
  - BRADYCARDIA [None]
  - DIARRHOEA [None]
  - DIZZINESS [None]
  - FLUSHING [None]
  - HYPERHIDROSIS [None]
  - MALAISE [None]
  - NAUSEA [None]
  - PALLOR [None]
  - SKIN WARM [None]
  - TENDERNESS [None]
  - VOMITING [None]
